FAERS Safety Report 9453736 (Version 2)
Quarter: 2013Q3

REPORT INFORMATION
  Report Type: Report from Study
  Country: CA (occurrence: CA)
  Receive Date: 20130812
  Receipt Date: 20130816
  Transmission Date: 20140515
  Serious: Yes (Hospitalization, Other)
  Sender: FDA-Public Use
  Company Number: PHHY2013CA085917

PATIENT
  Sex: Male

DRUGS (4)
  1. CLOZARIL [Suspect]
     Indication: SCHIZOPHRENIA
     Dosage: 200 MG, UNK
     Route: 048
     Dates: start: 201202
  2. VALPROIC ACID [Concomitant]
     Dosage: 1500 MG, UNK
  3. NOVOLIN GE NPH [Concomitant]
     Dosage: UNK UKN, UNK
  4. NOVORAPID [Concomitant]
     Dosage: UNK UKN, UNK

REACTIONS (5)
  - Coma [Recovered/Resolved]
  - Hypoglycaemia [Recovered/Resolved]
  - Unresponsive to stimuli [Recovered/Resolved]
  - Ketoacidosis [Recovered/Resolved]
  - Confusional state [Recovered/Resolved]
